FAERS Safety Report 9917019 (Version 2)
Quarter: 2014Q1

REPORT INFORMATION
  Report Type: Spontaneous
  Country: US (occurrence: US)
  Receive Date: 20140221
  Receipt Date: 20140320
  Transmission Date: 20141002
  Serious: Yes (Other)
  Sender: FDA-Public Use
  Company Number: US-GLAXOSMITHKLINE-A1061006A

PATIENT
  Age: 55 Year
  Sex: Female

DRUGS (3)
  1. ADVAIR [Suspect]
     Indication: ASTHMA
     Dosage: 1PUFF TWICE PER DAY
     Route: 055
     Dates: start: 2004
  2. PROVENTIL [Concomitant]
  3. ALBUTEROL NEBULIZER [Concomitant]

REACTIONS (6)
  - Pneumonia [Recovering/Resolving]
  - Pleurisy [Recovering/Resolving]
  - Cough [Recovering/Resolving]
  - Dysphonia [Recovering/Resolving]
  - Asthma [Unknown]
  - Product quality issue [Unknown]
